FAERS Safety Report 18006389 (Version 2)
Quarter: 2020Q3

REPORT INFORMATION
  Report Type: Spontaneous
  Country: US (occurrence: US)
  Receive Date: 20200710
  Receipt Date: 20200727
  Transmission Date: 20201103
  Serious: Yes (Hospitalization, Other)
  Sender: FDA-Public Use
  Company Number: US-BAXTER-2020BAX014180

PATIENT
  Age: 21 Year
  Sex: Male

DRUGS (4)
  1. TORADOL [Concomitant]
     Active Substance: KETOROLAC TROMETHAMINE
     Indication: ARTHRALGIA
  2. DOXIL [Suspect]
     Active Substance: DOXORUBICIN HYDROCHLORIDE
     Indication: OSTEOSARCOMA
     Route: 065
  3. CISPLATIN. [Suspect]
     Active Substance: CISPLATIN
     Indication: OSTEOSARCOMA
     Route: 065
  4. TORADOL [Concomitant]
     Active Substance: KETOROLAC TROMETHAMINE
     Indication: SWELLING
     Route: 065

REACTIONS (2)
  - Deep vein thrombosis [Unknown]
  - Pulmonary embolism [Unknown]
